FAERS Safety Report 18028374 (Version 2)
Quarter: 2020Q3

REPORT INFORMATION
  Report Type: Report from Study
  Country: JP (occurrence: JP)
  Receive Date: 20200715
  Receipt Date: 20200728
  Transmission Date: 20201103
  Serious: Yes (Death, Other)
  Sender: FDA-Public Use
  Company Number: JP-JNJFOC-20200712681

PATIENT

DRUGS (1)
  1. HALOMONTH [Suspect]
     Active Substance: HALOPERIDOL DECANOATE
     Indication: PRODUCT USED FOR UNKNOWN INDICATION
     Dosage: HALOPERIDOL DECANOATE:50MG/ML
     Route: 030

REACTIONS (2)
  - Therapeutic product effect incomplete [Unknown]
  - Completed suicide [Fatal]
